FAERS Safety Report 8053796-4 (Version None)
Quarter: 2012Q1

REPORT INFORMATION
  Report Type: 
  Country: None (occurrence: None)
  Receive Date: 20120118
  Receipt Date: 20120109
  Transmission Date: 20120608
  Serious: Yes (Death, Hospitalization)
  Sender: FDA-Public Use
  Company Number: US-ACTELION-A-NJ2010-41227

PATIENT

DRUGS (4)
  1. OXYGEN [Concomitant]
  2. TRACLEER [Suspect]
     Indication: PULMONARY ARTERIAL HYPERTENSION
     Dosage: 125 MG, BID
     Route: 048
     Dates: start: 20100111
  3. CALCIUM CHANNEL BLOCKERS [Concomitant]
  4. REVATIO [Concomitant]

REACTIONS (3)
  - WEIGHT INCREASED [None]
  - DEATH [None]
  - FLUID RETENTION [None]
